FAERS Safety Report 15061157 (Version 2)
Quarter: 2018Q3

REPORT INFORMATION
  Report Type: Spontaneous
  Country: US (occurrence: US)
  Receive Date: 20180625
  Receipt Date: 20180829
  Transmission Date: 20181010
  Serious: No
  Sender: FDA-Public Use
  Company Number: US-TEVA-2018-US-915524

PATIENT
  Sex: Female

DRUGS (2)
  1. OXYBUTYNIN. [Suspect]
     Active Substance: OXYBUTYNIN CHLORIDE
     Indication: HYPERTONIC BLADDER
     Route: 062
  2. FAMCICLOVIR. [Concomitant]
     Active Substance: FAMCICLOVIR

REACTIONS (3)
  - Inappropriate schedule of drug administration [Unknown]
  - Application site erythema [Unknown]
  - Product adhesion issue [Unknown]
